FAERS Safety Report 9447776 (Version 2)
Quarter: 2013Q4

REPORT INFORMATION
  Report Type: Spontaneous
  Country: US (occurrence: US)
  Receive Date: 20130808
  Receipt Date: 20131008
  Transmission Date: 20140711
  Serious: No
  Sender: FDA-Public Use
  Company Number: US-009507513-1307USA014654

PATIENT
  Age: 25 Year
  Sex: Female
  Weight: 99.32 kg

DRUGS (1)
  1. NEXPLANON [Suspect]
     Dosage: UNK
     Route: 059
     Dates: start: 20130718

REACTIONS (2)
  - Device expulsion [Recovered/Resolved]
  - No adverse event [Unknown]
